FAERS Safety Report 5600584-1 (Version None)
Quarter: 2008Q1

REPORT INFORMATION
  Report Type: 
  Country: None (occurrence: None)
  Receive Date: 20080123
  Receipt Date: 20080111
  Transmission Date: 20080703
  Serious: Yes (Hospitalization)
  Sender: FDA-Public Use
  Company Number: FR-SANOFI-SYNTHELABO-A02200800146

PATIENT
  Sex: Female

DRUGS (5)
  1. STILNOX [Suspect]
     Indication: MULTIPLE DRUG OVERDOSE INTENTIONAL
     Route: 048
     Dates: start: 20070831, end: 20070831
  2. ALCOHOL [Concomitant]
     Dosage: UNK
     Route: 048
     Dates: start: 20070831, end: 20070831
  3. XANAX [Suspect]
     Indication: MULTIPLE DRUG OVERDOSE INTENTIONAL
     Route: 048
     Dates: start: 20070831, end: 20070831
  4. LEXOMIL [Suspect]
     Indication: MULTIPLE DRUG OVERDOSE INTENTIONAL
     Route: 048
     Dates: start: 20070831, end: 20070831
  5. AVLOCARDYL [Suspect]
     Indication: MULTIPLE DRUG OVERDOSE INTENTIONAL
     Route: 048
     Dates: start: 20070831, end: 20070831

REACTIONS (4)
  - AREFLEXIA [None]
  - COMA [None]
  - MULTIPLE DRUG OVERDOSE INTENTIONAL [None]
  - RHABDOMYOLYSIS [None]
